FAERS Safety Report 6867436-0 (Version None)
Quarter: 2010Q3

REPORT INFORMATION
  Report Type: 
  Country: None (occurrence: None)
  Receive Date: 20100722
  Receipt Date: 20100713
  Transmission Date: 20110219
  Serious: Yes (Other)
  Sender: FDA-Public Use
  Company Number: US-BAXTER-2010BH018723

PATIENT
  Sex: Male

DRUGS (2)
  1. DIANEAL [Suspect]
     Indication: PERITONEAL DIALYSIS
     Route: 033
  2. DIANEAL [Suspect]
     Indication: PERITONEAL DIALYSIS
     Route: 033

REACTIONS (12)
  - ASTHENIA [None]
  - DIALYSIS [None]
  - GAIT DISTURBANCE [None]
  - HAEMODIALYSIS [None]
  - HYPOTONIA [None]
  - INSOMNIA [None]
  - MOBILITY DECREASED [None]
  - MUSCLE SPASMS [None]
  - PAIN IN EXTREMITY [None]
  - TREMOR [None]
  - VITAMIN D DEFICIENCY [None]
  - WHEELCHAIR USER [None]
